FAERS Safety Report 5974288-X (Version None)
Quarter: 2008Q4

REPORT INFORMATION
  Report Type: 
  Country: None (occurrence: None)
  Receive Date: 20081128
  Receipt Date: 20081113
  Transmission Date: 20090506
  Serious: Yes (Life-Threatening)
  Sender: FDA-Public Use
  Company Number: DSA_32684_2008

PATIENT
  Age: 44 Year
  Sex: Female

DRUGS (10)
  1. CITALOPRAM HYDROBROMIDE [Suspect]
     Indication: DEPRESSION
     Dosage: 20 MG QD ORAL; 40 MG QD ORAL
     Route: 048
  2. MEPERIDINE HCL [Suspect]
     Indication: PAIN
     Dosage: 230 MG OVER 8 HOURS, FOR 8 HOURS INTRAVENOUS DRIP
     Route: 041
  3. ZOLPIDEM TARTRATE [Concomitant]
  4. LANSOPRAZOLE [Concomitant]
  5. ENOXAPARIN SODIUM [Concomitant]
  6. FENTANYL-100 [Concomitant]
  7. HYDROMORPHONE HCL [Concomitant]
  8. HYDROCODONE BITARTRATE AND ACETAMINOPHEN [Concomitant]
  9. PROMETHAZINE [Concomitant]
  10. GATIFLOXACIN [Concomitant]

REACTIONS (15)
  - ABNORMAL BEHAVIOUR [None]
  - AGITATION [None]
  - BLOOD PRESSURE SYSTOLIC INCREASED [None]
  - BODY TEMPERATURE INCREASED [None]
  - CONDITION AGGRAVATED [None]
  - DEPRESSION [None]
  - DISORIENTATION [None]
  - HEART RATE INCREASED [None]
  - ILLUSION [None]
  - NAUSEA [None]
  - PARANOIA [None]
  - PLATELET COUNT INCREASED [None]
  - RESPIRATORY RATE INCREASED [None]
  - SEROTONIN SYNDROME [None]
  - WOUND INFECTION [None]
